FAERS Safety Report 5138035-6 (Version None)
Quarter: 2006Q4

REPORT INFORMATION
  Report Type: 
  Country: None (occurrence: None)
  Receive Date: 20061030
  Receipt Date: 20060405
  Transmission Date: 20070319
  Serious: Yes (Hospitalization)
  Sender: FDA-Public Use
  Company Number: US-GLAXOSMITHKLINE-A0600586A

PATIENT
  Age: 52 Year
  Sex: Male

DRUGS (6)
  1. ADVAIR HFA [Suspect]
     Indication: ASTHMA
     Dosage: 2PUFF TWICE PER DAY
     Route: 055
  2. AVANDIA [Suspect]
     Route: 048
  3. SINGULAIR [Concomitant]
  4. DUONEB [Concomitant]
  5. ALBUTEROL [Concomitant]
  6. UNKNOWN PAIN MEDICATION [Concomitant]

REACTIONS (3)
  - ANGIONEUROTIC OEDEMA [None]
  - DRUG EFFECT DECREASED [None]
  - PNEUMONIA [None]
